FAERS Safety Report 25562121 (Version 1)
Quarter: 2025Q3

REPORT INFORMATION
  Report Type: Spontaneous
  Country: EU (occurrence: EU)
  Receive Date: 20250716
  Receipt Date: 20250716
  Transmission Date: 20251021
  Serious: Yes (Hospitalization, Other)
  Sender: ASTELLAS
  Company Number: EU-ASTELLAS-2025-AER-038567

PATIENT
  Age: 79 Year
  Sex: Male

DRUGS (3)
  1. CRESEMBA [Suspect]
     Active Substance: ISAVUCONAZONIUM SULFATE
     Indication: Urinary tract infection fungal
     Route: 065
     Dates: start: 20241113, end: 20250506
  2. CEFDITOREN [Suspect]
     Active Substance: CEFDITOREN
     Indication: Chronic obstructive pulmonary disease
     Route: 065
     Dates: start: 20250424, end: 20250430
  3. ERTAPENEM [Suspect]
     Active Substance: ERTAPENEM
     Indication: Pneumonia escherichia
     Route: 042
     Dates: start: 20250430

REACTIONS (1)
  - Clostridium difficile colitis [Recovered/Resolved]

NARRATIVE: CASE EVENT DATE: 20250507
